FAERS Safety Report 14379651 (Version 1)
Quarter: 2018Q1

REPORT INFORMATION
  Report Type: Spontaneous
  Country: FR (occurrence: FR)
  Receive Date: 20180112
  Receipt Date: 20180112
  Transmission Date: 20180509
  Serious: Yes (Hospitalization)
  Sender: FDA-Public Use
  Company Number: FR-CIPLA LTD.-2018FR00103

PATIENT

DRUGS (3)
  1. DIAMICRON 60 MG, COMPRIME SECABLE A LIBERATION MODIFIEE [Suspect]
     Active Substance: GLICLAZIDE
     Dosage: 1 DF, DAILY
     Route: 048
     Dates: start: 201705, end: 201706
  2. AMLODIPINE [Suspect]
     Active Substance: AMLODIPINE BESYLATE
     Dosage: 5 MG, DAILY
     Route: 048
     Dates: start: 201706, end: 20170623
  3. COVERAM [Suspect]
     Active Substance: AMLODIPINE\PERINDOPRIL
     Dosage: 1 DF, DAILY
     Route: 048
     Dates: start: 201705, end: 201706

REACTIONS (1)
  - Hyponatraemia [Recovering/Resolving]

NARRATIVE: CASE EVENT DATE: 201706
